FAERS Safety Report 20108846 (Version 4)
Quarter: 2022Q1

REPORT INFORMATION
  Report Type: Report from Study
  Country: US (occurrence: US)
  Receive Date: 20211124
  Receipt Date: 20220128
  Transmission Date: 20220423
  Serious: No
  Sender: FDA-Public Use
  Company Number: US-NOVARTISTESTPH-NVSC2021US269425

PATIENT
  Sex: Female

DRUGS (1)
  1. MAYZENT [Suspect]
     Active Substance: SIPONIMOD
     Indication: Multiple sclerosis
     Dosage: 2 MG, QD (TABLET)
     Route: 048
     Dates: start: 20211119

REACTIONS (5)
  - Nausea [Unknown]
  - Cough [Unknown]
  - Illness [Unknown]
  - Headache [Unknown]
  - Fall [Unknown]
